FAERS Safety Report 6767627-3 (Version None)
Quarter: 2010Q2

REPORT INFORMATION
  Report Type: 
  Country: None (occurrence: None)
  Receive Date: 20100614
  Receipt Date: 20100601
  Transmission Date: 20101027
  Serious: Yes (Death, Hospitalization)
  Sender: FDA-Public Use
  Company Number: US-ELI_LILLY_AND_COMPANY-US201005002621

PATIENT
  Sex: Female
  Weight: 51.247 kg

DRUGS (4)
  1. FORTEO [Suspect]
     Indication: OSTEOGENESIS IMPERFECTA
     Dosage: 20 UG, DAILY (1/D)
     Dates: start: 20080116, end: 20091030
  2. FORTEO [Suspect]
     Dosage: 20 UG, DAILY (1/D)
  3. CALCIUM CARBONATE [Concomitant]
  4. VITAMIN D2 [Concomitant]
     Dosage: 400 U, UNK

REACTIONS (2)
  - INTRACRANIAL ANEURYSM [None]
  - OFF LABEL USE [None]
